FAERS Safety Report 16970790 (Version 3)
Quarter: 2019Q4

REPORT INFORMATION
  Report Type: Report from Study
  Country: US (occurrence: US)
  Receive Date: 20191029
  Receipt Date: 20191210
  Transmission Date: 20200122
  Serious: Yes (Hospitalization, Other)
  Sender: FDA-Public Use
  Company Number: US-PFIZER INC-2019465206

PATIENT
  Age: 61 Year
  Sex: Female

DRUGS (3)
  1. SUTENT [Suspect]
     Active Substance: SUNITINIB MALATE
     Indication: RENAL CELL CARCINOMA
     Dosage: 50 MG, CYCLIC (2 WEEKS ON, 1 WEEK OFF)
     Route: 048
     Dates: start: 201808, end: 2019
  2. SUTENT [Suspect]
     Active Substance: SUNITINIB MALATE
     Dosage: 50 MG, CYCLIC (4 WEEKS ON, 2 WEEKS OFF)
     Route: 048
     Dates: start: 20190819, end: 2019
  3. SUTENT [Suspect]
     Active Substance: SUNITINIB MALATE
     Dosage: 50 MG, CYCLIC (2 WEEKS ON, 1 WEEK OFF)
     Route: 048
     Dates: start: 201909, end: 20191119

REACTIONS (11)
  - Diarrhoea [Recovered/Resolved]
  - Hyponatraemia [Unknown]
  - Hypokalaemia [Unknown]
  - Fatigue [Unknown]
  - Nervousness [Recovered/Resolved]
  - Nausea [Unknown]
  - Feeling abnormal [Recovered/Resolved]
  - Bacterial infection [Recovering/Resolving]
  - Upper respiratory tract infection [Recovering/Resolving]
  - Hypertension [Recovered/Resolved]
  - Headache [Unknown]

NARRATIVE: CASE EVENT DATE: 2019
